FAERS Safety Report 6374488-3 (Version None)
Quarter: 2009Q3

REPORT INFORMATION
  Report Type: 
  Country: None (occurrence: None)
  Receive Date: 20090924
  Receipt Date: 20090921
  Transmission Date: 20100115
  Serious: Yes (Hospitalization)
  Sender: FDA-Public Use
  Company Number: FR-WYE-G04473609

PATIENT
  Sex: Female

DRUGS (1)
  1. ADVIL [Suspect]
     Indication: VARICELLA
     Dosage: ONE SINGLE DOSE
     Route: 048
     Dates: start: 20090601, end: 20090601

REACTIONS (3)
  - CONDITION AGGRAVATED [None]
  - NECROTISING FASCIITIS [None]
  - VARICELLA [None]
